FAERS Safety Report 6113948-7 (Version None)
Quarter: 2009Q1

REPORT INFORMATION
  Report Type: 
  Country: None (occurrence: None)
  Receive Date: 20090312
  Receipt Date: 20090202
  Transmission Date: 20090719
  Serious: No
  Sender: FDA-Public Use
  Company Number: US-ABBOTT-09P-163-0501401-00

PATIENT
  Sex: Female

DRUGS (3)
  1. LUPRON DEPOT [Suspect]
     Indication: DYSMENORRHOEA
     Dates: start: 20081218
  2. LUPRON DEPOT [Suspect]
     Indication: NAUSEA
  3. LUPRON DEPOT [Suspect]
     Indication: VOMITING

REACTIONS (7)
  - DRUG INEFFECTIVE [None]
  - HOT FLUSH [None]
  - HYPOMENORRHOEA [None]
  - MENSTRUAL DISORDER [None]
  - MUSCLE SPASMS [None]
  - NAUSEA [None]
  - VOMITING [None]
